FAERS Safety Report 7161972-8 (Version None)
Quarter: 2010Q4

REPORT INFORMATION
  Report Type: 
  Country: None (occurrence: None)
  Receive Date: 20101202
  Receipt Date: 20101117
  Transmission Date: 20110411
  Serious: Yes (Other)
  Sender: FDA-Public Use
  Company Number: 2010-3952

PATIENT

DRUGS (1)
  1. DYSPORT [Suspect]
     Indication: THERAPEUTIC PROCEDURE
     Dosage: NOT REPORTED, SINGLE CYCLE)
     Dates: start: 20100101, end: 20100101

REACTIONS (2)
  - DYSPHAGIA [None]
  - GASTROINTESTINAL TUBE INSERTION [None]
